FAERS Safety Report 10047773 (Version 1)
Quarter: 2014Q1

REPORT INFORMATION
  Report Type: Spontaneous
  Country: US (occurrence: US)
  Receive Date: 20140331
  Receipt Date: 20140331
  Transmission Date: 20141002
  Serious: Yes (Hospitalization)
  Sender: FDA-Public Use
  Company Number: US-JNJFOC-20140314979

PATIENT
  Age: 50 Year
  Sex: Male
  Weight: 132.45 kg

DRUGS (9)
  1. INVOKANA [Suspect]
     Indication: DIABETES MELLITUS
     Route: 048
     Dates: start: 201312
  2. PRAVASTATIN [Concomitant]
     Route: 048
     Dates: start: 2000
  3. GLIMEPIRIDE [Concomitant]
     Indication: DIABETES MELLITUS
     Route: 048
     Dates: start: 2000
  4. METFORMIN [Concomitant]
     Indication: DIABETES MELLITUS
     Route: 048
     Dates: start: 2000
  5. LISINOPRIL/HCTZ [Concomitant]
     Route: 048
     Dates: start: 2000
  6. FISH OIL [Concomitant]
  7. VITAMIN D [Concomitant]
  8. SUPER B COMPLEX [Concomitant]
  9. ASPIRIN [Concomitant]
     Dates: start: 2000

REACTIONS (10)
  - Urinary tract infection [Recovered/Resolved]
  - General physical health deterioration [Not Recovered/Not Resolved]
  - Muscle spasms [Not Recovered/Not Resolved]
  - Pain [Not Recovered/Not Resolved]
  - Sensation of pressure [Not Recovered/Not Resolved]
  - Penile pain [Not Recovered/Not Resolved]
  - Feeling abnormal [Not Recovered/Not Resolved]
  - Myalgia [Not Recovered/Not Resolved]
  - Fatigue [Not Recovered/Not Resolved]
  - Restlessness [Not Recovered/Not Resolved]
